FAERS Safety Report 7199782-8 (Version None)
Quarter: 2010Q4

REPORT INFORMATION
  Report Type: 
  Country: None (occurrence: None)
  Receive Date: 20101228
  Receipt Date: 20101227
  Transmission Date: 20110411
  Serious: Yes (Hospitalization)
  Sender: FDA-Public Use
  Company Number: IT-ROCHE-747578

PATIENT
  Sex: Female

DRUGS (3)
  1. RIVOTRIL [Suspect]
     Dosage: DOSE: 200 MG (10 TABS), FREQUENCY: TOTAL.
     Route: 048
     Dates: start: 20101120, end: 20101120
  2. VALDORM [Suspect]
     Dosage: DOSE:1 DF,FREQUENCY:TOTAL.
     Route: 048
     Dates: start: 20101120, end: 20101120
  3. RISPERDAL [Suspect]
     Dosage: DOSE: 70ML, FREQUENCY: TOTAL.
     Route: 048
     Dates: start: 20101120, end: 20101120

REACTIONS (3)
  - BRADYPHRENIA [None]
  - HYPOTENSION [None]
  - TACHYCARDIA [None]
